FAERS Safety Report 7771322-1 (Version None)
Quarter: 2011Q3

REPORT INFORMATION
  Report Type: 
  Country: None (occurrence: None)
  Receive Date: 20110922
  Receipt Date: 20110919
  Transmission Date: 20111222
  Serious: Yes (Hospitalization)
  Sender: FDA-Public Use
  Company Number: US-MERCK-1106USA00887

PATIENT
  Age: 76 Year
  Sex: Female

DRUGS (13)
  1. ASCORBIC ACID [Concomitant]
     Route: 065
     Dates: start: 19800101
  2. CHROMIUM PICOLINATE [Concomitant]
     Route: 065
     Dates: start: 19800101
  3. FLAXSEED [Concomitant]
     Route: 065
     Dates: start: 19800101
  4. VITAMIN E [Concomitant]
     Route: 065
     Dates: start: 19800101
  5. FOSAMAX [Suspect]
     Indication: OSTEOPOROSIS
     Route: 048
     Dates: start: 19980501, end: 20090601
  6. BIOTIN [Concomitant]
     Route: 065
     Dates: start: 19800101
  7. NIACIN [Concomitant]
     Route: 065
     Dates: start: 19800101
  8. POTASSIUM (UNSPECIFIED) [Concomitant]
     Route: 065
     Dates: start: 19800101
  9. ZINC PICOLINATE [Concomitant]
     Route: 065
     Dates: start: 19800101
  10. GLUCOSAMINE [Concomitant]
     Route: 065
     Dates: start: 19800101
  11. ASPIRIN [Concomitant]
     Route: 065
     Dates: start: 19900101
  12. UBIDECARENONE [Concomitant]
     Dosage: COQ10
     Route: 065
     Dates: start: 19800101
  13. CALCIUM (UNSPECIFIED) [Concomitant]
     Route: 065
     Dates: start: 19800101

REACTIONS (23)
  - OEDEMA [None]
  - VITAMIN D DEFICIENCY [None]
  - ANAEMIA POSTOPERATIVE [None]
  - DEHYDRATION [None]
  - NAUSEA [None]
  - THROMBOCYTOPENIA [None]
  - BONE DISORDER [None]
  - HYPERTENSION [None]
  - ATRIOVENTRICULAR BLOCK FIRST DEGREE [None]
  - FRACTURE NONUNION [None]
  - FALL [None]
  - ARTHROPATHY [None]
  - DEVICE FAILURE [None]
  - HYPOTHYROIDISM [None]
  - SUPRAVENTRICULAR TACHYCARDIA [None]
  - FEMUR FRACTURE [None]
  - BLOOD PRESSURE INCREASED [None]
  - VOMITING [None]
  - SCOLIOSIS [None]
  - DRUG HYPERSENSITIVITY [None]
  - IMPAIRED HEALING [None]
  - OSTEOARTHRITIS [None]
  - BACK PAIN [None]
